FAERS Safety Report 8800058 (Version 1)
Quarter: 2012Q4

REPORT INFORMATION
  Report Type: 
  Country: US (occurrence: US)
  Receive Date: 20120921
  Receipt Date: 20120921
  Transmission Date: 20130627
  Serious: No
  Sender: FDA-Public Use
  Company Number: US-009507513-1208USA007783

PATIENT
  Sex: Male
  Weight: 104.31 kg

DRUGS (7)
  1. VICTRELIS [Suspect]
     Dosage: 800 mg, tid
     Route: 048
  2. PEGASYS [Suspect]
  3. REBETOL [Suspect]
  4. ZOLPIDEM TARTRATE [Concomitant]
  5. VITAMINS (UNSPECIFIED) [Concomitant]
  6. NEUPOGEN [Concomitant]
  7. MILK THISTLE [Concomitant]

REACTIONS (6)
  - Heart rate increased [Unknown]
  - Dry mouth [Unknown]
  - Fatigue [Unknown]
  - Abdominal pain upper [Unknown]
  - Varicose vein [Unknown]
  - Alopecia [Unknown]
